FAERS Safety Report 8447770-3 (Version None)
Quarter: 2012Q2

REPORT INFORMATION
  Report Type: 
  Country: None (occurrence: None)
  Receive Date: 20120612
  Receipt Date: 20120515
  Transmission Date: 20120825
  Serious: Yes (Disabling)
  Sender: FDA-Public Use
  Company Number: CF 1913151

PATIENT
  Age: 54 Year
  Sex: Female

DRUGS (3)
  1. ACUVUE OASYS SOF LENSES FOR ASTIGMATISM [Concomitant]
  2. POLYETHYLENE GLYCOL [Suspect]
     Indication: DRY EYE
     Dosage: 1 DROP AS NEEDED TO EYE
     Dates: start: 20090101, end: 20110101
  3. ALCON OPTIFREE REPLENIS MULTIPURPOSE DISINFECTING SOLN [Concomitant]

REACTIONS (6)
  - KERATITIS FUNGAL [None]
  - CORNEAL SCAR [None]
  - HERPES OPHTHALMIC [None]
  - BLINDNESS UNILATERAL [None]
  - INTRAOCULAR PRESSURE INCREASED [None]
  - FUSARIUM INFECTION [None]
